FAERS Safety Report 6743527-X (Version None)
Quarter: 2010Q2

REPORT INFORMATION
  Report Type: 
  Country: None (occurrence: None)
  Receive Date: 20100526
  Receipt Date: 20100526
  Transmission Date: 20101027
  Serious: Yes (Disabling)
  Sender: FDA-Public Use
  Company Number: None

PATIENT
  Age: 66 Year
  Sex: Female
  Weight: 68.0396 kg

DRUGS (1)
  1. SIMVASTATIN [Suspect]
     Indication: BLOOD CHOLESTEROL
     Dosage: 40 MG NIGHTLY
     Dates: start: 20090101

REACTIONS (4)
  - ARTHROPATHY [None]
  - GAIT DISTURBANCE [None]
  - MUSCLE DISORDER [None]
  - PLANTAR FASCIITIS [None]
